FAERS Safety Report 21508651 (Version 1)
Quarter: 2022Q4

REPORT INFORMATION
  Report Type: Spontaneous
  Country: GB (occurrence: GB)
  Receive Date: 20221026
  Receipt Date: 20221026
  Transmission Date: 20230113
  Serious: Yes (Life-Threatening, Hospitalization, Other)
  Sender: FDA-Public Use
  Company Number: None

PATIENT
  Age: 27 Year
  Sex: Male

DRUGS (1)
  1. SULFASALAZINE [Suspect]
     Active Substance: SULFASALAZINE
     Indication: Psoriatic arthropathy
     Dosage: UNK

REACTIONS (5)
  - Neutropenic sepsis [Recovering/Resolving]
  - Off label use [Unknown]
  - Malaise [Unknown]
  - Oropharyngeal pain [Unknown]
  - Rash [Unknown]

NARRATIVE: CASE EVENT DATE: 20221003
